FAERS Safety Report 19933466 (Version 1)
Quarter: 2021Q4

REPORT INFORMATION
  Report Type: Spontaneous
  Country: RO (occurrence: RO)
  Receive Date: 20211008
  Receipt Date: 20211008
  Transmission Date: 20220303
  Serious: Yes (Disabling, Other)
  Sender: FDA-Public Use
  Company Number: RO-ACCORD-240866

PATIENT
  Age: 36 Year
  Sex: Female
  Weight: 62 kg

DRUGS (3)
  1. DOCETAXEL [Suspect]
     Active Substance: DOCETAXEL
     Indication: Product used for unknown indication
     Dosage: DOSE: 120 MG/DAY
     Route: 042
     Dates: start: 20210614
  2. HERCEPTIN [Concomitant]
     Active Substance: TRASTUZUMAB
     Indication: Breast cancer
     Dosage: DOSE: 872 MG/DAY
     Route: 042
     Dates: start: 20210614
  3. PERJETA [Concomitant]
     Active Substance: PERTUZUMAB
     Indication: Breast cancer
     Dosage: DOSE: 420 MG/DAY
     Dates: start: 20210614

REACTIONS (6)
  - Abdominal pain [Unknown]
  - Diarrhoea [Unknown]
  - Vomiting [Unknown]
  - Decreased appetite [Unknown]
  - Bone pain [Unknown]
  - Myalgia [Unknown]
